FAERS Safety Report 16417188 (Version 5)
Quarter: 2021Q3

REPORT INFORMATION
  Report Type: Spontaneous
  Country: US (occurrence: US)
  Receive Date: 20190611
  Receipt Date: 20210712
  Transmission Date: 20211014
  Serious: Yes (Other)
  Sender: FDA-Public Use
  Company Number: US-PFIZER INC-2019248646

PATIENT
  Age: 66 Year
  Sex: Female
  Weight: 63 kg

DRUGS (2)
  1. IBRANCE [Suspect]
     Active Substance: PALBOCICLIB
     Dosage: 125 MG, DAILY (PO QD 21 DAYS ON 7 DAYS OFF)
     Dates: start: 20200319, end: 2021
  2. IBRANCE [Suspect]
     Active Substance: PALBOCICLIB
     Indication: BREAST CANCER METASTATIC
     Dosage: 100 MG, CYCLIC (DAILY FOR 21 DAYS)
     Route: 048
     Dates: start: 20190412

REACTIONS (10)
  - Anaemia [Not Recovered/Not Resolved]
  - White blood cell count decreased [Not Recovered/Not Resolved]
  - Off label use [Unknown]
  - Red blood cell count decreased [Not Recovered/Not Resolved]
  - Constipation [Unknown]
  - Nausea [Recovered/Resolved]
  - Thrombocytopenia [Not Recovered/Not Resolved]
  - Neutropenia [Not Recovered/Not Resolved]
  - Platelet count decreased [Not Recovered/Not Resolved]
  - Abdominal discomfort [Recovering/Resolving]

NARRATIVE: CASE EVENT DATE: 201904
